FAERS Safety Report 6371599-3 (Version None)
Quarter: 2009Q3

REPORT INFORMATION
  Report Type: 
  Country: None (occurrence: None)
  Receive Date: 20090923
  Receipt Date: 20080527
  Transmission Date: 20100115
  Serious: Yes (Other)
  Sender: FDA-Public Use
  Company Number: US-ASTRAZENECA-2007UW24321

PATIENT
  Age: 414 Month
  Sex: Male
  Weight: 90.3 kg

DRUGS (22)
  1. SEROQUEL [Suspect]
     Indication: DEPRESSION
     Dosage: 100MG-300MG
     Route: 048
     Dates: start: 19970801
  2. SEROQUEL [Suspect]
     Indication: BIPOLAR DISORDER
     Dosage: 100MG-300MG
     Route: 048
     Dates: start: 19970801
  3. SEROQUEL [Suspect]
     Indication: INSOMNIA
     Dosage: 100MG-300MG
     Route: 048
     Dates: start: 19970801
  4. SEROQUEL [Suspect]
     Indication: PERSONALITY DISORDER
     Dosage: 100MG-300MG
     Route: 048
     Dates: start: 19970801
  5. SEROQUEL [Suspect]
     Indication: AGITATION
     Dosage: 100MG-300MG
     Route: 048
     Dates: start: 19970801
  6. SEROQUEL [Suspect]
     Dosage: 100 - 300 MG
     Route: 048
     Dates: start: 20001219
  7. SEROQUEL [Suspect]
     Dosage: 100 - 300 MG
     Route: 048
     Dates: start: 20001219
  8. SEROQUEL [Suspect]
     Dosage: 100 - 300 MG
     Route: 048
     Dates: start: 20001219
  9. SEROQUEL [Suspect]
     Dosage: 100 - 300 MG
     Route: 048
     Dates: start: 20001219
  10. SEROQUEL [Suspect]
     Dosage: 100 - 300 MG
     Route: 048
     Dates: start: 20001219
  11. VALIUM [Concomitant]
     Indication: SLEEP DISORDER
     Route: 048
     Dates: start: 20001010
  12. ZYPREXA [Concomitant]
     Route: 048
     Dates: start: 20011222
  13. NEFAZODONE HCL [Concomitant]
     Indication: INSOMNIA
     Route: 048
     Dates: start: 20011222
  14. NEFAZODONE HCL [Concomitant]
     Indication: IRRITABILITY
     Route: 048
     Dates: start: 20011222
  15. NEFAZODONE HCL [Concomitant]
     Indication: DEPRESSED MOOD
     Route: 048
     Dates: start: 20011222
  16. TRAZODONE [Concomitant]
     Route: 048
     Dates: start: 20011222
  17. GLYBURIDE [Concomitant]
     Route: 048
     Dates: start: 20001010
  18. MIRTAZAPINE [Concomitant]
     Dosage: 15-30 MG, AT NIGHT
     Route: 048
     Dates: start: 20020109
  19. HALOPERIDOL [Concomitant]
     Indication: PSYCHOTIC DISORDER
     Route: 048
     Dates: start: 20011228
  20. HALOPERIDOL [Concomitant]
     Indication: AGITATION
     Route: 048
     Dates: start: 20011228
  21. PSEUDOEPHEDRINE HCL [Concomitant]
     Route: 048
     Dates: start: 20020103
  22. LORAZEPAM [Concomitant]
     Route: 048
     Dates: start: 20011227

REACTIONS (3)
  - DIABETES MELLITUS [None]
  - DIABETIC COMA [None]
  - TYPE 2 DIABETES MELLITUS [None]
